FAERS Safety Report 8829198 (Version 1)
Quarter: 2012Q4

REPORT INFORMATION
  Report Type: 
  Country: AU (occurrence: AU)
  Receive Date: 20121008
  Receipt Date: 20121008
  Transmission Date: 20130627
  Serious: Yes (Hospitalization)
  Sender: FDA-Public Use
  Company Number: AU-ABBOTT-12P-008-0992339-00

PATIENT
  Age: 35 Year
  Sex: Male

DRUGS (3)
  1. SODIUM VALPROATE [Suspect]
     Indication: BIPOLAR DISORDER
     Route: 065
  2. NICOTINE [Suspect]
     Indication: EX-TOBACCO USER
     Dosage: Daily
     Route: 062
  3. RISPERIDONE [Suspect]
     Indication: BIPOLAR DISORDER
     Route: 065

REACTIONS (10)
  - Mania [Recovered/Resolved]
  - Energy increased [Unknown]
  - Insomnia [Unknown]
  - Irritability [Unknown]
  - Anger [Unknown]
  - Psychomotor hyperactivity [Unknown]
  - Pressure of speech [Unknown]
  - Treatment noncompliance [Unknown]
  - Elevated mood [Unknown]
  - Inappropriate schedule of drug administration [Unknown]
